FAERS Safety Report 9161273 (Version 3)
Quarter: 2016Q1

REPORT INFORMATION
  Report Type: Spontaneous
  Country: US (occurrence: US)
  Receive Date: 20130313
  Receipt Date: 20160325
  Transmission Date: 20160526
  Serious: No
  Sender: FDA-Public Use
  Company Number: US-009507513-1303USA006088

PATIENT
  Sex: Female

DRUGS (1)
  1. JANUMET XR [Suspect]
     Active Substance: METFORMIN HYDROCHLORIDE\SITAGLIPTIN PHOSPHATE
     Dosage: UNK
     Route: 048

REACTIONS (9)
  - Epistaxis [Unknown]
  - Abdominal pain upper [Unknown]
  - Dyspepsia [Unknown]
  - Diarrhoea [Unknown]
  - Nail disorder [Unknown]
  - Blister [Unknown]
  - Tinea pedis [Unknown]
  - Fatigue [Unknown]
  - Night sweats [Unknown]
